FAERS Safety Report 21535001 (Version 2)
Quarter: 2022Q4

REPORT INFORMATION
  Report Type: Spontaneous
  Country: US (occurrence: US)
  Receive Date: 20221101
  Receipt Date: 20221101
  Transmission Date: 20230113
  Serious: Yes (Hospitalization, Other)
  Sender: FDA-Public Use
  Company Number: US-PFIZER INC-202201240944

PATIENT
  Age: 60 Year
  Sex: Male

DRUGS (1)
  1. METHOTREXATE SODIUM [Suspect]
     Active Substance: METHOTREXATE SODIUM
     Dosage: 4 DAYS INSTEAD OF WEEKLY

REACTIONS (5)
  - Inappropriate schedule of product administration [Unknown]
  - Stomatitis [Recovering/Resolving]
  - Skin lesion [Recovering/Resolving]
  - Swollen tongue [Recovering/Resolving]
  - Toxicity to various agents [Unknown]
